FAERS Safety Report 18723821 (Version 1)
Quarter: 2021Q1

REPORT INFORMATION
  Report Type: Other
  Country: US (occurrence: US)
  Receive Date: 20210111
  Receipt Date: 20210111
  Transmission Date: 20210419
  Serious: Yes (Other)
  Sender: FDA-Public Use
  Company Number: US-ROCHE-2744686

PATIENT
  Sex: Male

DRUGS (2)
  1. XELODA [Suspect]
     Active Substance: CAPECITABINE
     Indication: COLORECTAL CANCER METASTATIC
     Dosage: TAKE 3 TABLET(S) BY MOUTH TWICE A DAY 2 WEEK(S) ON, 1 WEEK(S) OFF
     Route: 048
  2. XELODA [Suspect]
     Active Substance: CAPECITABINE
     Indication: COLON CANCER

REACTIONS (3)
  - Malaise [Unknown]
  - Hepatic cirrhosis [Unknown]
  - Product dose omission issue [Unknown]
